FAERS Safety Report 4785080-6 (Version None)
Quarter: 2005Q3

REPORT INFORMATION
  Report Type: 
  Country: None (occurrence: None)
  Receive Date: 20050930
  Receipt Date: 20050922
  Transmission Date: 20060218
  Serious: Yes (Other)
  Sender: FDA-Public Use
  Company Number: US-JNJFOC-20050905757

PATIENT
  Sex: Male
  Weight: 104.33 kg

DRUGS (1)
  1. TOPAMAX [Suspect]
     Route: 048
     Dates: start: 20050501

REACTIONS (4)
  - ARTERITIS [None]
  - EPSTEIN-BARR VIRUS INFECTION [None]
  - INFLAMMATION [None]
  - OEDEMA PERIPHERAL [None]
